FAERS Safety Report 25166727 (Version 1)
Quarter: 2025Q2

REPORT INFORMATION
  Report Type: Spontaneous
  Country: US (occurrence: None)
  Receive Date: 20250404
  Receipt Date: 20250404
  Transmission Date: 20250717
  Serious: Yes (Disabling, Other)
  Sender: FDA-CTU
  Company Number: None

PATIENT
  Age: 65 Year
  Sex: Male
  Weight: 114.75 kg

DRUGS (19)
  1. AMIODARONE HYDROCHLORIDE [Suspect]
     Active Substance: AMIODARONE HYDROCHLORIDE
     Indication: Atrial fibrillation
     Dosage: 60 TABLETS TWICE A DAY ORAL?
     Route: 048
     Dates: start: 20250329
  2. IMITREX [Concomitant]
     Active Substance: SUMATRIPTAN SUCCINATE
  3. ONDANSETERON [Concomitant]
  4. FLEXERIL [Concomitant]
     Active Substance: CYCLOBENZAPRINE HYDROCHLORIDE
  5. ALBUTEROL [Concomitant]
     Active Substance: ALBUTEROL
  6. ELIQUIS [Concomitant]
     Active Substance: APIXABAN
  7. ATORVASATATIN [Concomitant]
  8. AMIODARONE [Concomitant]
     Active Substance: AMIODARONE
  9. METHOTREXATE [Concomitant]
     Active Substance: METHOTREXATE
  10. CIMZIA [Concomitant]
     Active Substance: CERTOLIZUMAB PEGOL
  11. LIDOCAINE [Concomitant]
     Active Substance: LIDOCAINE
  12. HYDROCODONE [Concomitant]
     Active Substance: HYDROCODONE
  13. METHOCARBAMOL [Concomitant]
     Active Substance: METHOCARBAMOL
  14. TRAMADOL [Concomitant]
     Active Substance: TRAMADOL
  15. TAMSULOSIN [Concomitant]
     Active Substance: TAMSULOSIN
  16. METOPROLOL [Concomitant]
     Active Substance: METOPROLOL
  17. RYBELSUS [Concomitant]
     Active Substance: SEMAGLUTIDE
  18. RESMED BIPAP [Concomitant]
  19. OBSTRUCTIVE SLEEP APNEA [Concomitant]

REACTIONS (17)
  - Nausea [None]
  - Irritability [None]
  - Anxiety [None]
  - Initial insomnia [None]
  - Suicidal ideation [None]
  - Decreased appetite [None]
  - Constipation [None]
  - Vomiting [None]
  - Dysuria [None]
  - Headache [None]
  - Vision blurred [None]
  - Back pain [None]
  - Dizziness [None]
  - Asthenia [None]
  - Disturbance in attention [None]
  - Hyperhidrosis [None]
  - Loss of personal independence in daily activities [None]

NARRATIVE: CASE EVENT DATE: 20250402
